FAERS Safety Report 22047812 (Version 1)
Quarter: 2023Q1

REPORT INFORMATION
  Report Type: Spontaneous
  Country: US (occurrence: US)
  Receive Date: 20230301
  Receipt Date: 20230301
  Transmission Date: 20230418
  Serious: No
  Sender: FDA-Public Use
  Company Number: US-GSK-US2023AMR030284

PATIENT
  Sex: Female

DRUGS (1)
  1. BENLYSTA [Suspect]
     Active Substance: BELIMUMAB
     Indication: Systemic lupus erythematosus
     Dosage: 200 MG/ML, Z, EVERY WEEK
     Route: 058

REACTIONS (4)
  - Injection site pain [Unknown]
  - Discomfort [Unknown]
  - Crying [Unknown]
  - Wrong technique in device usage process [Unknown]
